FAERS Safety Report 8076744-X (Version None)
Quarter: 2012Q1

REPORT INFORMATION
  Report Type: 
  Country: None (occurrence: None)
  Receive Date: 20120127
  Receipt Date: 20120123
  Transmission Date: 20120608
  Serious: No
  Sender: FDA-Public Use
  Company Number: US-B.I. PHARMACEUTICALS,INC./RIDGEFIELD-2012-BP-01418BP

PATIENT
  Sex: Male

DRUGS (2)
  1. ATROVENT [Suspect]
     Indication: EMPHYSEMA
     Route: 055
     Dates: start: 20050101, end: 20110101
  2. ATROVENT [Suspect]
     Dosage: 136 MCG
     Route: 055
     Dates: start: 20110101

REACTIONS (2)
  - INCREASED UPPER AIRWAY SECRETION [None]
  - DYSPNOEA [None]
